FAERS Safety Report 20812647 (Version 1)
Quarter: 2022Q2

REPORT INFORMATION
  Report Type: Spontaneous
  Country: CN (occurrence: CN)
  Receive Date: 20220511
  Receipt Date: 20220511
  Transmission Date: 20220721
  Serious: Yes (Hospitalization, Other)
  Sender: FDA-Public Use
  Company Number: CN-ALKEM LABORATORIES LIMITED-CN-ALKEM-2022-01921

PATIENT
  Age: 50 Year
  Sex: Male

DRUGS (2)
  1. MESALAMINE [Suspect]
     Active Substance: MESALAMINE
     Indication: Colitis ulcerative
     Dosage: 4000 MILLIGRAM, OD
     Route: 065
  2. MESALAMINE [Suspect]
     Active Substance: MESALAMINE
     Dosage: 500 MILLIGRAM, OD
     Route: 065

REACTIONS (4)
  - Diarrhoea haemorrhagic [Unknown]
  - Drug intolerance [Unknown]
  - Abdominal pain [Unknown]
  - Pyrexia [Unknown]
